FAERS Safety Report 5779440-4 (Version None)
Quarter: 2008Q2

REPORT INFORMATION
  Report Type: 
  Country: None (occurrence: None)
  Receive Date: 20080619
  Receipt Date: 20080609
  Transmission Date: 20081010
  Serious: Yes (Other)
  Sender: FDA-Public Use
  Company Number: DE-PFIZER INC-2008042641

PATIENT
  Sex: Male

DRUGS (3)
  1. VIAGRA [Suspect]
     Indication: PROSTATIC OPERATION
     Dosage: TEXT:DAILY
     Route: 048
  2. CIALIS [Suspect]
  3. LEVITRA [Suspect]
     Route: 048

REACTIONS (2)
  - CYANOPSIA [None]
  - RETINAL ISCHAEMIA [None]
